FAERS Safety Report 9271813 (Version 1)
Quarter: 2013Q2

REPORT INFORMATION
  Report Type: Spontaneous
  Country: US (occurrence: US)
  Receive Date: 20130506
  Receipt Date: 20130506
  Transmission Date: 20140414
  Serious: Yes (Other)
  Sender: FDA-Public Use
  Company Number: US-COVIDIEN/TYCO HEALTHCARE/MALLINCKRODT-T201301763

PATIENT
  Age: 29 Year
  Sex: Male

DRUGS (3)
  1. GABLOFEN [Suspect]
     Indication: MUSCLE SPASTICITY
     Route: 037
  2. BACLOFEN [Suspect]
     Dosage: 20 MG, QID
     Route: 048
  3. BACLOFEN [Suspect]
     Dosage: 10 MG, QID

REACTIONS (4)
  - Neuralgia [Recovering/Resolving]
  - Migraine [Recovering/Resolving]
  - Bedridden [Recovering/Resolving]
  - Feeling cold [Recovering/Resolving]
